FAERS Safety Report 14705336 (Version 5)
Quarter: 2018Q3

REPORT INFORMATION
  Report Type: Report from Study
  Country: None (occurrence: LU)
  Receive Date: 20180402
  Receipt Date: 20180917
  Transmission Date: 20181010
  Serious: Yes (Hospitalization)
  Sender: FDA-Public Use
  Company Number: LU-ABBVIE-18K-098-2307807-00

PATIENT
  Age: 68 Year
  Sex: Male
  Weight: 80 kg

DRUGS (4)
  1. DUODOPA [Suspect]
     Active Substance: CARBIDOPA\LEVODOPA
     Dosage: MD=9ML?CD=4.3ML/HR DURING 16HRS?ED=2.3ML
     Route: 050
     Dates: start: 20180530, end: 20180911
  2. DUODOPA [Suspect]
     Active Substance: CARBIDOPA\LEVODOPA
     Dosage: MD=10ML?CD=4.2ML/HR DURING 16HRS ?ED=2ML
     Route: 050
     Dates: start: 20180313, end: 20180530
  3. DUODOPA [Suspect]
     Active Substance: CARBIDOPA\LEVODOPA
     Dosage: MD: 8.5ML; CD: 4.3ML/H FOR 16 HRS; ED: 2.3ML
     Route: 050
     Dates: start: 20180911
  4. DUODOPA [Suspect]
     Active Substance: CARBIDOPA\LEVODOPA
     Indication: PARKINSON^S DISEASE
     Dosage: MD=9ML CD=3.4ML/HR DURING 16HRS  ED=1.5ML
     Route: 050
     Dates: start: 20180309, end: 20180313

REACTIONS (8)
  - Disorientation [Recovering/Resolving]
  - Dyskinesia [Not Recovered/Not Resolved]
  - Back pain [Not Recovered/Not Resolved]
  - Freezing phenomenon [Recovering/Resolving]
  - Prostatic disorder [Not Recovered/Not Resolved]
  - Pneumonia [Recovering/Resolving]
  - Urinary retention [Not Recovered/Not Resolved]
  - Vertigo [Unknown]

NARRATIVE: CASE EVENT DATE: 2018
